FAERS Safety Report 17203183 (Version 1)
Quarter: 2019Q4

REPORT INFORMATION
  Report Type: Spontaneous
  Country: GB (occurrence: GB)
  Receive Date: 20191226
  Receipt Date: 20191226
  Transmission Date: 20200122
  Serious: Yes (Death, Other)
  Sender: FDA-Public Use
  Company Number: GB-PFIZER INC-6234

PATIENT
  Age: 14 Year
  Sex: Female

DRUGS (15)
  1. DEXAMETHASONE SODIUM PHOSPHATE. [Suspect]
     Active Substance: DEXAMETHASONE SODIUM PHOSPHATE
     Indication: ACUTE LYMPHOCYTIC LEUKAEMIA
     Dosage: 14 MG, UNK
     Route: 048
     Dates: start: 20000606, end: 20000610
  2. ETOPOSIDE. [Suspect]
     Active Substance: ETOPOSIDE
     Indication: ACUTE LYMPHOCYTIC LEUKAEMIA
     Dosage: 420 MG, UNK
     Route: 042
     Dates: start: 20000523, end: 20000602
  3. RANITIDINE. [Suspect]
     Active Substance: RANITIDINE
     Indication: ACUTE LYMPHOCYTIC LEUKAEMIA
     Dosage: 300 MG, UNK
     Route: 048
     Dates: start: 20000606, end: 20000610
  4. FLUCLOXACILLIN [Suspect]
     Active Substance: FLUCLOXACILLIN
     Indication: ACUTE LYMPHOCYTIC LEUKAEMIA
     Dosage: 5 G, UNK
     Route: 042
     Dates: start: 20000428
  5. PARACETAMOL [Suspect]
     Active Substance: ACETAMINOPHEN
     Indication: ACUTE LYMPHOCYTIC LEUKAEMIA
     Dosage: 2 G, UNK
     Route: 048
     Dates: start: 20000428, end: 20000502
  6. METHOTREXATE SODIUM. [Suspect]
     Active Substance: METHOTREXATE SODIUM
     Indication: ACUTE LYMPHOCYTIC LEUKAEMIA
     Dosage: 12.5 MG, UNK
     Route: 037
     Dates: start: 20000414, end: 20000511
  7. ACICLOVIR [Suspect]
     Active Substance: ACYCLOVIR
     Indication: ACUTE LYMPHOCYTIC LEUKAEMIA
     Dosage: 2 G, DAILY
     Route: 048
     Dates: start: 20000428, end: 20000502
  8. CEFTAZIDIME. [Suspect]
     Active Substance: CEFTAZIDIME
     Indication: ACUTE LYMPHOCYTIC LEUKAEMIA
     Dosage: 6.6 G, UNK
     Route: 042
     Dates: start: 20000428
  9. VINCRISTINE SULFATE. [Suspect]
     Active Substance: VINCRISTINE SULFATE
     Indication: ACUTE LYMPHOCYTIC LEUKAEMIA
     Dosage: 2 MG, UNK
     Route: 042
     Dates: start: 20000414, end: 20000606
  10. ALLOPURINOL. [Suspect]
     Active Substance: ALLOPURINOL
     Indication: ACUTE LYMPHOCYTIC LEUKAEMIA
     Dosage: 150 MG, DAILY
     Route: 048
     Dates: start: 20000413, end: 20000418
  11. SULFAMETHOXAZOLE/TRIMETHOPRIM [Suspect]
     Active Substance: SULFAMETHOXAZOLE\TRIMETHOPRIM
     Indication: ACUTE LYMPHOCYTIC LEUKAEMIA
     Dosage: 960 MG, UNK
     Route: 048
     Dates: start: 20000523, end: 20000610
  12. CHLORPHENIRAMINE [CHLORPHENAMINE] [Suspect]
     Active Substance: CHLORPHENIRAMINE
     Indication: ACUTE LYMPHOCYTIC LEUKAEMIA
     Dosage: 5 MG, UNK
     Route: 042
     Dates: start: 20000511, end: 20000512
  13. FLUCONAZOLE. [Suspect]
     Active Substance: FLUCONAZOLE
     Indication: ACUTE LYMPHOCYTIC LEUKAEMIA
     Dosage: 100 MG, UNK
     Route: 048
     Dates: start: 20000429, end: 20000503
  14. HYDROCORTISONE. [Suspect]
     Active Substance: HYDROCORTISONE
     Indication: ACUTE LYMPHOCYTIC LEUKAEMIA
     Dosage: 50 MG, UNK
     Route: 042
     Dates: start: 20000511
  15. ASPARAGINASE [Suspect]
     Active Substance: ASPARAGINASE
     Indication: ACUTE LYMPHOCYTIC LEUKAEMIA
     Dosage: 3500 IU, DAILY
     Route: 042
     Dates: start: 20000425, end: 20000606

REACTIONS (7)
  - Off label use [Unknown]
  - Condition aggravated [Unknown]
  - Respiratory tract haemorrhage [Fatal]
  - Drug ineffective for unapproved indication [Fatal]
  - Cytopenia [Unknown]
  - Pulmonary haemorrhage [Fatal]
  - Staphylococcal infection [Unknown]

NARRATIVE: CASE EVENT DATE: 2000
